FAERS Safety Report 6088126-0 (Version None)
Quarter: 2009Q1

REPORT INFORMATION
  Report Type: 
  Country: None (occurrence: None)
  Receive Date: 20090224
  Receipt Date: 20090213
  Transmission Date: 20090719
  Serious: Yes (Death, Other)
  Sender: FDA-Public Use
  Company Number: GB-RANBAXY-2008RR-18456

PATIENT
  Age: 76 Year
  Sex: Female

DRUGS (6)
  1. CIPROFLOXACIN [Suspect]
     Indication: DEVICE RELATED INFECTION
  2. FUSIDIC ACID [Suspect]
     Indication: INFECTION
  3. MEROPENEM [Suspect]
     Indication: INFECTION
  4. PRISTINAMYCIN [Suspect]
     Indication: INFECTION
  5. PRISTINAMYCIN [Suspect]
     Indication: MULTIPLE-DRUG RESISTANCE
  6. VANCOMYCIN HYDROCHLORIDE [Suspect]
     Indication: INFECTION

REACTIONS (2)
  - MULTIPLE-DRUG RESISTANCE [None]
  - MYOCARDIAL INFARCTION [None]
